FAERS Safety Report 4846775-9 (Version None)
Quarter: 2005Q4

REPORT INFORMATION
  Report Type: 
  Country: None (occurrence: None)
  Receive Date: 20051201
  Receipt Date: 20051119
  Transmission Date: 20060501
  Serious: Yes (Other)
  Sender: FDA-Public Use
  Company Number: 2005137170

PATIENT
  Age: 46 Year
  Sex: Male

DRUGS (6)
  1. LYRICA [Suspect]
     Indication: PAIN
     Dates: start: 20050922, end: 20050929
  2. ALLOPURINOL [Concomitant]
  3. GLUCOVANCE [Concomitant]
  4. AVANDIA [Concomitant]
  5. LIPITOR [Concomitant]
  6. NAPROSYN [Concomitant]

REACTIONS (5)
  - DEPRESSED MOOD [None]
  - DIARRHOEA HAEMORRHAGIC [None]
  - GINGIVAL BLEEDING [None]
  - OFF LABEL USE [None]
  - RECTAL HAEMORRHAGE [None]
